FAERS Safety Report 7482087-5 (Version None)
Quarter: 2011Q2

REPORT INFORMATION
  Report Type: 
  Country: None (occurrence: None)
  Receive Date: 20110516
  Receipt Date: 20110502
  Transmission Date: 20111010
  Serious: Yes (Other)
  Sender: FDA-Public Use
  Company Number: PHHY2011CA37132

PATIENT
  Sex: Male

DRUGS (2)
  1. DOXYCYCLINE [Concomitant]
     Dosage: 1 DF, BID
  2. CIPROFLOXACIN [Suspect]
     Indication: BACTERIAL INFECTION
     Dosage: 500 MG, BID
     Route: 048
     Dates: start: 20101107, end: 20110122

REACTIONS (48)
  - NERVOUS SYSTEM DISORDER [None]
  - INFLUENZA LIKE ILLNESS [None]
  - BURNING SENSATION [None]
  - PALPITATIONS [None]
  - VISUAL IMPAIRMENT [None]
  - PANIC ATTACK [None]
  - DRY EYE [None]
  - POLLAKIURIA [None]
  - MUSCLE TWITCHING [None]
  - PAIN IN EXTREMITY [None]
  - NIGHT SWEATS [None]
  - PARAESTHESIA [None]
  - MEMORY IMPAIRMENT [None]
  - COGNITIVE DISORDER [None]
  - EYE DISCHARGE [None]
  - CONFUSIONAL STATE [None]
  - RASH [None]
  - ARTHRALGIA [None]
  - DEPRESSION [None]
  - BRADYCARDIA [None]
  - VITREOUS FLOATERS [None]
  - IRRITABILITY [None]
  - WEIGHT DECREASED [None]
  - BOWEL MOVEMENT IRREGULARITY [None]
  - HYPOAESTHESIA [None]
  - DYSURIA [None]
  - INSOMNIA [None]
  - ANXIETY [None]
  - BONE PAIN [None]
  - NIGHTMARE [None]
  - PAIN [None]
  - DRY MOUTH [None]
  - ACNE [None]
  - SENSITIVITY OF TEETH [None]
  - MUSCULAR WEAKNESS [None]
  - DEPERSONALISATION [None]
  - SINUSITIS [None]
  - DIPLOPIA [None]
  - PRURITUS [None]
  - URTICARIA [None]
  - DISTURBANCE IN ATTENTION [None]
  - VISION BLURRED [None]
  - BLISTER [None]
  - NEURALGIA [None]
  - MUSCLE SPASMS [None]
  - TACHYCARDIA [None]
  - RASH MACULAR [None]
  - TREMOR [None]
